FAERS Safety Report 4608466-9 (Version None)
Quarter: 2005Q1

REPORT INFORMATION
  Report Type: 
  Country: None (occurrence: None)
  Receive Date: 20050311
  Receipt Date: 20050311
  Transmission Date: 20050727
  Serious: Yes (Other)
  Sender: FDA-Public Use
  Company Number: None

PATIENT
  Sex: Female
  Weight: 74.55 kg

DRUGS (9)
  1. METHOTREXATE [Suspect]
     Dosage: 15 MG +50 MG
     Dates: start: 20041230
  2. HYDROCORTISONE [Suspect]
     Dosage: IT ON DAY 1
     Route: 037
  3. CYCLOPHOSPHAMIDE [Suspect]
     Dosage: 1000 MG/M2 IV OVER 15-30 IN ON DAY 1
     Route: 042
     Dates: start: 20050210
  4. CYTARABINE [Suspect]
     Dosage: 2000 MG /M2 IV OVER 3 HR ON DAYS 1, 2, AND 3
     Route: 042
     Dates: start: 20050210, end: 20050212
  5. ELSPAR [Suspect]
     Dosage: 6000  U/M2 IV SC/IM ON DAYS 15, 18, AND 22
     Route: 058
     Dates: start: 20050225
  6. ELSPAR [Suspect]
     Dosage: 6000  U/M2 IV SC/IM ON DAYS 15, 18, AND 22
     Route: 058
     Dates: start: 20050228
  7. DEXAMETHASONE [Suspect]
     Dosage: (0.1%) 2 DROPS EACH EYE QID AND PRN ON DAYS 1, 2,3, AND 4
     Dates: start: 20050210, end: 20050213
  8. G-CSF [Suspect]
     Dosage: 5-MCG/KG/DAY SC BEGINNING ON DAY 4 AND CONTINUING UNTIL ANC } 5000 MCL (2/13-2/26)
     Route: 058
  9. COTRIMOXAZOLE DS [Suspect]
     Dosage: ONE TABLET PO BID 3 DAYS/WEEK UNIT THE COMPLETION OF ALL CHEMOTHERAPY (EVERY M-W-F STARTING 2/11 AND
     Route: 048
     Dates: start: 20050211

REACTIONS (6)
  - CHILLS [None]
  - DEHYDRATION [None]
  - NAUSEA [None]
  - NEUTROPENIA [None]
  - VIRAL INFECTION [None]
  - VOMITING [None]
